FAERS Safety Report 8720811 (Version 2)
Quarter: 2015Q2

REPORT INFORMATION
  Report Type: Report from Study
  Country: US (occurrence: US)
  Receive Date: 20120813
  Receipt Date: 20150625
  Transmission Date: 20150821
  Serious: Yes (Hospitalization)
  Sender: FDA-Public Use
  Company Number: US-ROCHE-1100518

PATIENT
  Sex: Male

DRUGS (13)
  1. ACTIVASE [Suspect]
     Active Substance: ALTEPLASE
     Route: 042
  2. ACTIVASE [Suspect]
     Active Substance: ALTEPLASE
     Indication: ACUTE MYOCARDIAL INFARCTION
     Route: 042
     Dates: start: 19930626
  3. ACTIVASE [Suspect]
     Active Substance: ALTEPLASE
     Route: 042
  4. ACTIVASE [Suspect]
     Active Substance: ALTEPLASE
     Route: 042
  5. NITROGLYCERIN. [Concomitant]
     Active Substance: NITROGLYCERIN
     Route: 060
  6. ASA [Concomitant]
     Active Substance: ASPIRIN
     Route: 048
  7. MORPHINE SULFATE. [Concomitant]
     Active Substance: MORPHINE SULFATE
     Route: 065
  8. TYLENOL [Concomitant]
     Active Substance: ACETAMINOPHEN
     Route: 048
  9. HEPARIN [Concomitant]
     Active Substance: HEPARIN SODIUM
  10. ACTIVASE [Suspect]
     Active Substance: ALTEPLASE
     Route: 042
  11. LOPRESSOR [Concomitant]
     Active Substance: METOPROLOL TARTRATE
     Route: 048
  12. ACTIVASE [Suspect]
     Active Substance: ALTEPLASE
     Route: 042
  13. ACTIVASE [Suspect]
     Active Substance: ALTEPLASE
     Route: 042

REACTIONS (2)
  - Pain [Unknown]
  - Somnolence [Unknown]
